FAERS Safety Report 5196263-8 (Version None)
Quarter: 2006Q4

REPORT INFORMATION
  Report Type: 
  Country: None (occurrence: None)
  Receive Date: 20061222
  Receipt Date: 20061207
  Transmission Date: 20070319
  Serious: Yes (Disabling)
  Sender: FDA-Public Use
  Company Number: NASCN-06-0672

PATIENT
  Age: 70 Year
  Sex: Female

DRUGS (2)
  1. NAROPIN [Suspect]
     Indication: EPIDURAL ANAESTHESIA
     Dosage: EPIDURAL
     Route: 008
     Dates: start: 20050601
  2. NAROPIN [Suspect]
     Indication: SPINAL ANAESTHESIA
     Dosage: EPIDURAL
     Route: 008
     Dates: start: 20050601

REACTIONS (1)
  - SPINAL CORD PARALYSIS [None]
